FAERS Safety Report 18447244 (Version 1)
Quarter: 2020Q4

REPORT INFORMATION
  Report Type: Spontaneous
  Country: US (occurrence: US)
  Receive Date: 20201030
  Receipt Date: 20201030
  Transmission Date: 20210114
  Serious: Yes (Other)
  Sender: FDA-Public Use
  Company Number: US-NOVOPROD-711787

PATIENT
  Sex: Female

DRUGS (2)
  1. FIASP [Concomitant]
     Active Substance: INSULIN ASPART
     Indication: TYPE 1 DIABETES MELLITUS
     Dosage: UNK
     Route: 058
  2. TRESIBA [Suspect]
     Active Substance: INSULIN DEGLUDEC
     Indication: TYPE 1 DIABETES MELLITUS
     Dosage: 8-9 UNITS
     Route: 058

REACTIONS (8)
  - Blood glucose increased [Unknown]
  - Balance disorder [Unknown]
  - Inability to afford medication [Unknown]
  - Unevaluable event [Unknown]
  - Fall [Unknown]
  - Visual impairment [Unknown]
  - Gait disturbance [Unknown]
  - Night sweats [Unknown]

NARRATIVE: CASE EVENT DATE: 20200131
